FAERS Safety Report 10664899 (Version 1)
Quarter: 2014Q4

REPORT INFORMATION
  Report Type: Report from Study
  Country: FR (occurrence: FR)
  Receive Date: 20141219
  Receipt Date: 20141219
  Transmission Date: 20150529
  Serious: Yes (Other)
  Sender: FDA-Public Use
  Company Number: FR-BAYER-2014-186795

PATIENT
  Age: 61 Year
  Sex: Male
  Weight: 99 kg

DRUGS (14)
  1. REFAMETINIB [Suspect]
     Active Substance: REFAMETINIB
     Indication: HEPATOCELLULAR CARCINOMA
     Dosage: 50 MG, BID
     Route: 048
     Dates: start: 20141028, end: 20141208
  2. CALCIUM W/VITAMIN D NOS [Concomitant]
     Active Substance: CALCIUM\VITAMIN D
     Indication: OSTEOPOROSIS
     Dosage: DAILY DOSE 1 G
     Route: 048
  3. ALDACTONE [Concomitant]
     Active Substance: SPIRONOLACTONE
     Indication: ASCITES
     Dosage: DAILY DOSE 150 MG
     Route: 048
     Dates: start: 20141209
  4. ALPRAZOLAM. [Concomitant]
     Active Substance: ALPRAZOLAM
     Indication: ANXIETY
     Dosage: DAILY DOSE 1 MG
     Route: 048
     Dates: start: 2011
  5. IMODIUM [LOPERAMIDE HYDROCHLORIDE] [Concomitant]
     Indication: DIARRHOEA
     Dosage: UNK UNK, PRN
     Route: 048
     Dates: start: 20141102
  6. TETRALYSAL [Concomitant]
     Active Substance: LYMECYCLINE
     Indication: RASH
     Dosage: DAILY DOSE 300 MG
     Route: 048
     Dates: start: 20141120
  7. ERYFLUID [Concomitant]
     Active Substance: ERYTHROMYCIN
     Indication: RASH
     Dosage: DAILY DOSE 1 APPLICATION
     Route: 061
     Dates: start: 20141120
  8. LANTUS [Concomitant]
     Active Substance: INSULIN GLARGINE
     Indication: DIABETES MELLITUS
     Dosage: DAILY DOSE 34 IU
     Route: 058
     Dates: start: 201007
  9. SORAFENIB (RAF KINASE INHIBITOR) [Suspect]
     Active Substance: SORAFENIB
     Indication: HEPATOCELLULAR CARCINOMA
     Dosage: 600 MG, (200 MG AM + 400 MG PM)
     Route: 048
     Dates: start: 20141028, end: 20141208
  10. PERMIXON [Concomitant]
     Active Substance: SAW PALMETTO
     Indication: PROSTATIC ADENOMA
     Dosage: 160 MG, BID
     Route: 048
     Dates: start: 2010
  11. PROPANOLOL [Concomitant]
     Active Substance: PROPRANOLOL HYDROCHLORIDE
     Indication: HYPERTENSION
     Dosage: DAILY DOSE 160 MG
     Route: 048
     Dates: start: 2010
  12. AZOPT [Concomitant]
     Active Substance: BRINZOLAMIDE
     Indication: GLAUCOMA
     Dosage: 1 GTT, BID
     Route: 061
     Dates: start: 20141208
  13. LASILIX [Concomitant]
     Active Substance: FUROSEMIDE
     Indication: ASCITES
     Dosage: DAILY DOSE 20 MG
     Route: 048
     Dates: start: 20141209
  14. ACTONEL [Concomitant]
     Active Substance: RISEDRONATE SODIUM
     Indication: OSTEOPOROSIS
     Dosage: DAILY DOSE 5 MG
     Route: 048

REACTIONS (1)
  - Glaucoma [Recovered/Resolved]

NARRATIVE: CASE EVENT DATE: 20141208
